FAERS Safety Report 8581372-3 (Version None)
Quarter: 2012Q3

REPORT INFORMATION
  Report Type: 
  Country: None (occurrence: None)
  Receive Date: 20120727
  Receipt Date: 20120718
  Transmission Date: 20120928
  Serious: Yes (Disabling)
  Sender: FDA-Public Use
  Company Number: AUR-APL-2012-03143

PATIENT
  Age: 56 Year
  Sex: Male
  Weight: 88.89 kg

DRUGS (6)
  1. WELLBUTRIN XL [Concomitant]
  2. SERTRALINE HYDROCHLORIDE [Suspect]
     Indication: DEPRESSION
     Dosage: 200 MG (100 MG,2 IN 1 D),ORAL
     Route: 048
     Dates: start: 20120501
  3. EFFEXOR XR [Suspect]
     Indication: DEPRESSION
     Dosage: 450 MG (150 MG,3 IN 1 D) ; 450 MG (150 MG,3 IN 1 D)
     Dates: start: 19900101, end: 20120501
  4. ZOLOFT [Suspect]
     Indication: PRODUCT USED FOR UNKNOWN INDICATION
     Dosage: 2- 100 MG (200MG DAILY)
  5. KLONOPIN [Concomitant]
  6. VENLAFAXINE HCL [Suspect]
     Indication: DEPRESSION
     Dosage: 450 MG (150 MG,3 IN 1 D),ORAL
     Route: 048
     Dates: start: 20120501

REACTIONS (4)
  - PRODUCT SUBSTITUTION ISSUE [None]
  - BACK INJURY [None]
  - ACCIDENT [None]
  - DRUG INEFFECTIVE [None]
